FAERS Safety Report 24023753 (Version 2)
Quarter: 2024Q2

REPORT INFORMATION
  Report Type: Report from Study
  Country: ZA (occurrence: ZA)
  Receive Date: 20240627
  Receipt Date: 20240627
  Transmission Date: 20240715
  Serious: No
  Sender: FDA-Public Use
  Company Number: ZA-ROCHE-3573559

PATIENT
  Sex: Male

DRUGS (1)
  1. VABYSMO [Suspect]
     Active Substance: FARICIMAB\FARICIMAB-SVOA
     Indication: Macular degeneration
     Dosage: 25/MAR/2024, 29/APRIL/2024, 27/MAY/2024, 20/JUNE/2024
     Route: 050
     Dates: start: 20240313

REACTIONS (2)
  - Off label use [Unknown]
  - No adverse event [Unknown]
